FAERS Safety Report 10572352 (Version 1)
Quarter: 2014Q4

REPORT INFORMATION
  Report Type: Spontaneous
  Country: US (occurrence: US)
  Receive Date: 20141109
  Receipt Date: 20141109
  Transmission Date: 20150529
  Serious: Yes (Hospitalization)
  Sender: FDA-Public Use
  Company Number: US-TEVA-520237USA

PATIENT
  Age: 30 Year
  Sex: Male

DRUGS (4)
  1. TUMS [Suspect]
     Active Substance: CALCIUM CARBONATE
     Indication: GASTROOESOPHAGEAL REFLUX DISEASE
     Dosage: 14G DAILY
     Route: 048
  2. NAPROXEN. [Suspect]
     Active Substance: NAPROXEN
     Indication: JOINT INJURY
     Dosage: DOSE AND FREQUENCY NOT PROVIDED
     Route: 065
  3. CLINDAMYCIN [Suspect]
     Active Substance: CLINDAMYCIN\CLINDAMYCIN PHOSPHATE
     Indication: JOINT INJURY
     Dosage: DOSE AND FREQUENCY NOT PROVIDED
     Route: 065
  4. TUMS [Suspect]
     Active Substance: CALCIUM CARBONATE
     Indication: GASTROOESOPHAGEAL REFLUX DISEASE
     Dosage: 7G DAILY
     Route: 065

REACTIONS (5)
  - Milk-alkali syndrome [Recovering/Resolving]
  - Metabolic alkalosis [Recovering/Resolving]
  - Hypercalcaemia [Recovering/Resolving]
  - Acute kidney injury [Recovering/Resolving]
  - Hypovolaemia [Recovering/Resolving]
